FAERS Safety Report 4536489-7 (Version None)
Quarter: 2004Q4

REPORT INFORMATION
  Report Type: 
  Country: None (occurrence: None)
  Receive Date: 20041223
  Receipt Date: 20041214
  Transmission Date: 20050328
  Serious: Yes (Other)
  Sender: FDA-Public Use
  Company Number: IE-JNJFOC-20041204127

PATIENT
  Age: 11 Year
  Sex: Female

DRUGS (2)
  1. RISPERDAL [Suspect]
  2. RISPERDAL [Suspect]

REACTIONS (3)
  - DYSARTHRIA [None]
  - HEMIPARESIS [None]
  - TRANSIENT ISCHAEMIC ATTACK [None]
